FAERS Safety Report 10784908 (Version 1)
Quarter: 2015Q1

REPORT INFORMATION
  Report Type: Spontaneous
  Country: US (occurrence: US)
  Receive Date: 20150211
  Receipt Date: 20150211
  Transmission Date: 20150721
  Serious: No
  Sender: FDA-Public Use
  Company Number: US-GLAXOSMITHKLINE-A1073601A

PATIENT

DRUGS (2)
  1. LAMICTAL [Suspect]
     Active Substance: LAMOTRIGINE
     Indication: PRODUCT USED FOR UNKNOWN INDICATION
     Dosage: 200 MG TABLETS STARTED ON 24 JUL 2008, 100 MG TABLETS STARTED ON 19 OCTOBER 2010.
     Route: 065
     Dates: start: 20080724
  2. LAMICTAL XR [Suspect]
     Active Substance: LAMOTRIGINE
     Indication: PRODUCT USED FOR UNKNOWN INDICATION
     Dosage: 50 MG, 100 MG AND 200 MG TABLETS, DOSING UNKNOWN.
     Route: 065
     Dates: start: 20120120

REACTIONS (2)
  - Tremor [Unknown]
  - Dysgraphia [Unknown]
